FAERS Safety Report 15928780 (Version 1)
Quarter: 2019Q1

REPORT INFORMATION
  Report Type: Spontaneous
  Country: US (occurrence: US)
  Receive Date: 20190206
  Receipt Date: 20190206
  Transmission Date: 20190417
  Serious: No
  Sender: FDA-Public Use
  Company Number: US-SA-2019SA028671

PATIENT
  Age: 63 Year

DRUGS (1)
  1. DUPIXENT [Suspect]
     Active Substance: DUPILUMAB
     Indication: ASTHMA
     Dosage: 1200 MG, 1X, (TWO INJECTIONS IN THE ABDOMEN AND 2 IN THIGH
     Route: 058

REACTIONS (1)
  - Accidental overdose [Unknown]
